FAERS Safety Report 24105485 (Version 1)
Quarter: 2024Q3

REPORT INFORMATION
  Report Type: Spontaneous
  Country: US (occurrence: None)
  Receive Date: 20240716
  Receipt Date: 20240716
  Transmission Date: 20241017
  Serious: Yes (Other)
  Sender: Public
  Company Number: None

PATIENT
  Age: 63 Year
  Sex: Male
  Weight: 85.68 kg

DRUGS (14)
  1. REVLIMID [Suspect]
     Active Substance: LENALIDOMIDE
     Indication: Diffuse large B-cell lymphoma
     Dosage: OTHER FREQUENCY : 21 DAYS ON/7 OFF;?
     Route: 048
     Dates: start: 20240220, end: 20240312
  2. MONJUVI [Concomitant]
     Active Substance: TAFASITAMAB-CXIX
  3. ACYCLOVIR [Concomitant]
     Active Substance: ACYCLOVIR
  4. BACTRIM DS [Concomitant]
     Active Substance: SULFAMETHOXAZOLE\TRIMETHOPRIM
  5. FARXIGA [Concomitant]
     Active Substance: DAPAGLIFLOZIN PROPANEDIOL
  6. GABAPENTIN [Concomitant]
     Active Substance: GABAPENTIN
  7. LEVOFLOXACIN [Concomitant]
     Active Substance: LEVOFLOXACIN
  8. METFORMIN [Concomitant]
     Active Substance: METFORMIN HYDROCHLORIDE
  9. METOPROLOL SUCCINATE [Concomitant]
     Active Substance: METOPROLOL SUCCINATE
  10. ONDANSETRON [Concomitant]
     Active Substance: ONDANSETRON
  11. POSACONAZOLE [Concomitant]
     Active Substance: POSACONAZOLE
  12. PREDNISONE [Concomitant]
     Active Substance: PREDNISONE
  13. PROCHLORPERAZINE [Concomitant]
     Active Substance: PROCHLORPERAZINE
  14. ZARXIO [Concomitant]
     Active Substance: FILGRASTIM-SNDZ

REACTIONS (1)
  - Neutropenia [None]

NARRATIVE: CASE EVENT DATE: 20240312
